FAERS Safety Report 7018707-9 (Version None)
Quarter: 2010Q3

REPORT INFORMATION
  Report Type: 
  Country: None (occurrence: None)
  Receive Date: 20100928
  Receipt Date: 20100917
  Transmission Date: 20110219
  Serious: Yes (Hospitalization)
  Sender: FDA-Public Use
  Company Number: FR-JNJFOC-20041001540

PATIENT
  Age: 27 Year
  Sex: Female

DRUGS (4)
  1. REMICADE [Suspect]
     Indication: CROHN'S DISEASE
     Route: 042
  2. REMICADE [Suspect]
     Route: 042
  3. HUMIRA [Suspect]
     Indication: CROHN'S DISEASE
  4. PURINETHOL [Concomitant]

REACTIONS (2)
  - ANAPHYLACTIC REACTION [None]
  - TUBERCULOSIS [None]
